FAERS Safety Report 7930380-1 (Version None)
Quarter: 2011Q4

REPORT INFORMATION
  Report Type: 
  Country: None (occurrence: None)
  Receive Date: 20111121
  Receipt Date: 20110817
  Transmission Date: 20120403
  Serious: No
  Sender: FDA-Public Use
  Company Number: US-BAYER-2011-078852

PATIENT
  Sex: Female

DRUGS (5)
  1. ALEVE (CAPLET) [Suspect]
     Indication: HEADACHE
  2. SINUS MEDS [Concomitant]
     Indication: HEADACHE
  3. IBUPROFEN [Suspect]
     Indication: HEADACHE
  4. ACETAMINOPHEN [Concomitant]
     Indication: HEADACHE
  5. EXCEDRIN (MIGRAINE) [Concomitant]
     Indication: HEADACHE

REACTIONS (2)
  - SWELLING [None]
  - HEADACHE [None]
